FAERS Safety Report 11038664 (Version 2)
Quarter: 2015Q2

REPORT INFORMATION
  Report Type: Spontaneous
  Country: SK (occurrence: SK)
  Receive Date: 20150416
  Receipt Date: 20150428
  Transmission Date: 20150821
  Serious: Yes (Other)
  Sender: FDA-Public Use
  Company Number: SK-BAYER-2015-134311

PATIENT
  Age: 35 Year
  Sex: Female

DRUGS (1)
  1. MIRENA [Suspect]
     Active Substance: LEVONORGESTREL
     Indication: MENORRHAGIA
     Dosage: 20 MCG/24HR, CONT
     Route: 015
     Dates: start: 20140430, end: 20150324

REACTIONS (6)
  - Enterococcal infection [Recovered/Resolved]
  - Device expulsion [Recovered/Resolved]
  - Menorrhagia [None]
  - Uterine spasm [None]
  - Breast pain [None]
  - Vaginal haemorrhage [None]

NARRATIVE: CASE EVENT DATE: 20140610
